FAERS Safety Report 22702559 (Version 3)
Quarter: 2023Q4

REPORT INFORMATION
  Report Type: Spontaneous
  Country: US (occurrence: US)
  Receive Date: 20230713
  Receipt Date: 20231024
  Transmission Date: 20240109
  Serious: No
  Sender: FDA-Public Use
  Company Number: US-PFIZER INC-PV202300120013

PATIENT
  Age: 86 Year
  Sex: Female
  Weight: 79.819 kg

DRUGS (1)
  1. IBRANCE [Suspect]
     Active Substance: PALBOCICLIB
     Indication: Bone cancer
     Dosage: 125 MG, CYCLIC, DAILY FOR 21 DAYS, THEN HOLD FOR 7 DAYS
     Route: 048
     Dates: start: 20230309

REACTIONS (2)
  - Hypoacusis [Unknown]
  - Off label use [Unknown]
